FAERS Safety Report 17727837 (Version 1)
Quarter: 2020Q2

REPORT INFORMATION
  Report Type: Spontaneous
  Country: US (occurrence: US)
  Receive Date: 20200429
  Receipt Date: 20200429
  Transmission Date: 20200714
  Serious: No
  Sender: FDA-Public Use
  Company Number: None

PATIENT
  Age: 35 Year
  Sex: Female
  Weight: 56.25 kg

DRUGS (3)
  1. GARDEN OF LIFE MYKIND ORGANICS PRENATAL ONCE DAILY MULTIITAMIN [Concomitant]
  2. NORDIC NATURALS PRENATAL DHA (INCLUDES VITAMIN D3) [Concomitant]
  3. AMOXICILLIN 500MG [Suspect]
     Active Substance: AMOXICILLIN
     Indication: TOOTH INFECTION
     Dosage: ?          QUANTITY:40 TABLET(S);?
     Route: 048
     Dates: start: 20200414, end: 20200424

REACTIONS (1)
  - Constipation [None]

NARRATIVE: CASE EVENT DATE: 20200416
